FAERS Safety Report 4309008-8 (Version None)
Quarter: 2004Q1

REPORT INFORMATION
  Report Type: 
  Country: None (occurrence: None)
  Receive Date: 20040301
  Receipt Date: 20040213
  Transmission Date: 20041129
  Serious: Yes (Hospitalization)
  Sender: FDA-Public Use
  Company Number: 2003-06153

PATIENT
  Age: 63 Year
  Sex: Male

DRUGS (12)
  1. VIREAD [Suspect]
     Indication: HIV INFECTION
     Dosage: 300 MG QD PO
     Route: 048
     Dates: start: 20030826, end: 20030908
  2. IZILOX [Suspect]
     Indication: ATYPICAL MYCOBACTERIAL INFECTION
     Dosage: 400 MG QD PO
     Route: 048
     Dates: start: 20030813, end: 20030908
  3. BACTRIM [Suspect]
     Indication: ATYPICAL MYCOBACTERIAL INFECTION
     Dates: start: 20030813, end: 20030908
  4. ZECLAR [Suspect]
     Indication: ATYPICAL MYCOBACTERIAL INFECTION
     Dosage: 500 MG BID PO
     Route: 048
     Dates: start: 20030813, end: 20030908
  5. ANSATIPIN [Suspect]
     Indication: ATYPICAL MYCOBACTERIAL INFECTION
     Dosage: 150 MG TID PO
     Route: 048
     Dates: start: 20030813, end: 20030908
  6. MYAMBUTOL [Suspect]
     Indication: ATYPICAL MYCOBACTERIAL INFECTION
     Dosage: 300 MG QD PO
     Route: 048
     Dates: start: 20030813, end: 20030908
  7. ZERIT [Concomitant]
  8. EPIVIR [Concomitant]
  9. AVLOCARDYL [Concomitant]
  10. AMLOR [Concomitant]
  11. ASPEGIC 325 [Concomitant]
  12. TAHOR [Concomitant]

REACTIONS (6)
  - DRUG HYPERSENSITIVITY [None]
  - EOSINOPHILIA [None]
  - HYPERTHERMIA [None]
  - STAPHYLOCOCCAL SEPSIS [None]
  - TOXIC SKIN ERUPTION [None]
  - URTICARIA [None]
